FAERS Safety Report 6639728-1 (Version None)
Quarter: 2010Q1

REPORT INFORMATION
  Report Type: 
  Country: None (occurrence: None)
  Receive Date: 20100318
  Receipt Date: 20100308
  Transmission Date: 20100710
  Serious: Yes (Hospitalization, Other)
  Sender: FDA-Public Use
  Company Number: PHHY2010BR13882

PATIENT
  Sex: Female

DRUGS (2)
  1. DIOVAN [Suspect]
     Indication: BLOOD PRESSURE
     Dosage: 1 TABLET (160 MG) DAILY
     Route: 048
  2. DIOVAN [Suspect]
     Dosage: 1 TABLET (80 MG) DAILY

REACTIONS (4)
  - CEREBROVASCULAR ACCIDENT [None]
  - LIMB DISCOMFORT [None]
  - RENAL IMPAIRMENT [None]
  - SURGERY [None]
